FAERS Safety Report 17932985 (Version 21)
Quarter: 2024Q3

REPORT INFORMATION
  Report Type: Report from Study
  Country: US (occurrence: US)
  Receive Date: 20200624
  Receipt Date: 20240814
  Transmission Date: 20241016
  Serious: Yes (Other)
  Sender: TAKEDA
  Company Number: US-SHIRE-US202020584

PATIENT
  Age: 47 Year
  Sex: Male

DRUGS (23)
  1. HEMOFIL [Suspect]
     Active Substance: ANTIHEMOPHILIC FACTOR HUMAN
     Indication: Haemorrhage
     Dosage: 2860 INTERNATIONAL UNIT
     Route: 042
  2. HEMOFIL [Suspect]
     Active Substance: ANTIHEMOPHILIC FACTOR HUMAN
     Dosage: 2950 INTERNATIONAL UNIT
     Route: 042
  3. HEMOFIL [Suspect]
     Active Substance: ANTIHEMOPHILIC FACTOR HUMAN
     Dosage: 2800 INTERNATIONAL UNIT
     Route: 042
  4. HEMOFIL [Suspect]
     Active Substance: ANTIHEMOPHILIC FACTOR HUMAN
     Dosage: 2874 INTERNATIONAL UNIT
     Route: 042
  5. HEMOFIL [Suspect]
     Active Substance: ANTIHEMOPHILIC FACTOR HUMAN
     Dosage: 2600 INTERNATIONAL
     Route: 065
  6. HEMOFIL [Suspect]
     Active Substance: ANTIHEMOPHILIC FACTOR HUMAN
     Dosage: 6240 INTERNATIONAL UNIT
     Route: 065
  7. HEMOFIL [Suspect]
     Active Substance: ANTIHEMOPHILIC FACTOR HUMAN
     Dosage: 3080 INTERNATIONAL UNIT
     Route: 042
  8. HEMOFIL [Suspect]
     Active Substance: ANTIHEMOPHILIC FACTOR HUMAN
     Dosage: 2695 INTERNATIONAL UNIT
     Route: 042
  9. HEMOFIL [Suspect]
     Active Substance: ANTIHEMOPHILIC FACTOR HUMAN
     Dosage: 3234 INTERNATIONAL UNIT
     Route: 042
  10. HEMOFIL [Suspect]
     Active Substance: ANTIHEMOPHILIC FACTOR HUMAN
     Dosage: 5390 INTERNATIONAL UNIT
     Route: 042
  11. HEMOFIL [Suspect]
     Active Substance: ANTIHEMOPHILIC FACTOR HUMAN
     Dosage: 6468 INTERNATIONAL UNIT
     Route: 042
  12. HEMOFIL [Suspect]
     Active Substance: ANTIHEMOPHILIC FACTOR HUMAN
     Dosage: 2695 INTERNATIONAL UNIT
     Route: 065
  13. HEMOFIL [Suspect]
     Active Substance: ANTIHEMOPHILIC FACTOR HUMAN
     Dosage: 3234 INTERNATIONAL UNIT
     Route: 065
  14. HEMOFIL [Suspect]
     Active Substance: ANTIHEMOPHILIC FACTOR HUMAN
     Dosage: 5390 INTERNATIONAL UNIT
     Route: 065
  15. HEMOFIL [Suspect]
     Active Substance: ANTIHEMOPHILIC FACTOR HUMAN
     Dosage: 6468 INTERNATIONAL UNIT
     Route: 065
  16. HEMOFIL [Suspect]
     Active Substance: ANTIHEMOPHILIC FACTOR HUMAN
     Dosage: 5220 INTERNATIONAL UNIT
     Route: 065
  17. HEMOFIL [Suspect]
     Active Substance: ANTIHEMOPHILIC FACTOR HUMAN
     Dosage: 6264 INTERNATIONAL UNIT
     Route: 065
  18. HEMOFIL [Suspect]
     Active Substance: ANTIHEMOPHILIC FACTOR HUMAN
     Dosage: 6120 INTERNATIONAL UNIT
     Route: 065
  19. HEMOFIL [Suspect]
     Active Substance: ANTIHEMOPHILIC FACTOR HUMAN
     Dosage: UNK
     Route: 050
  20. HEMOFIL [Suspect]
     Active Substance: ANTIHEMOPHILIC FACTOR HUMAN
     Dosage: 2690 INTERNATIONAL UNIT
     Route: 065
  21. HEMOFIL [Suspect]
     Active Substance: ANTIHEMOPHILIC FACTOR HUMAN
     Dosage: 3225 INTERNATIONAL UNIT
     Route: 065
  22. HEMOFIL [Suspect]
     Active Substance: ANTIHEMOPHILIC FACTOR HUMAN
     Dosage: 5375 INTERNATIONAL UNIT
     Route: 065
  23. HEMOFIL [Suspect]
     Active Substance: ANTIHEMOPHILIC FACTOR HUMAN
     Dosage: 6450 INTERNATIONAL UNIT
     Route: 065

REACTIONS (8)
  - Muscle haemorrhage [Recovered/Resolved]
  - Haemarthrosis [Not Recovered/Not Resolved]
  - Haemorrhage [Recovered/Resolved]
  - Spontaneous haemorrhage [Unknown]
  - Muscle injury [Recovered/Resolved]
  - Limb injury [Unknown]
  - Arthralgia [Unknown]
  - Fall [Unknown]

NARRATIVE: CASE EVENT DATE: 20200619
